FAERS Safety Report 19104109 (Version 1)
Quarter: 2021Q2

REPORT INFORMATION
  Report Type: Spontaneous
  Country: CN (occurrence: CN)
  Receive Date: 20210407
  Receipt Date: 20210407
  Transmission Date: 20210717
  Serious: Yes (Other)
  Sender: FDA-Public Use
  Company Number: CN-GLAXOSMITHKLINE-CN2021APC072449

PATIENT
  Age: 3 Year
  Sex: Female
  Weight: 13.5 kg

DRUGS (9)
  1. IPRATROPIUM BROMIDE SOLUTION [Suspect]
     Active Substance: IPRATROPIUM BROMIDE
     Indication: PNEUMONIA
     Dosage: 250 UG, BID
     Route: 055
     Dates: start: 20210325, end: 20210329
  2. VITAMIN C INJECTION [Concomitant]
     Active Substance: ASCORBIC ACID
     Indication: ENEMA ADMINISTRATION
     Dosage: 1 G
     Route: 042
  3. SALBUTAMOL SULPHATE [Suspect]
     Active Substance: ALBUTEROL SULFATE
     Indication: PNEUMONIA
     Dosage: 2.5 MG, BID
     Route: 055
     Dates: start: 20210325, end: 20210329
  4. AMBROXOL HYDROCHLORIDE INJECTION [Suspect]
     Active Substance: AMBROXOL HYDROCHLORIDE
     Indication: PNEUMONIA
     Dosage: 7.5 MG, BID
     Route: 042
     Dates: start: 20210325, end: 20210329
  5. SODIUM CHLORIDE INJECTION [Concomitant]
     Active Substance: SODIUM CHLORIDE
     Indication: VEHICLE SOLUTION USE
     Dosage: 100 ML, BID
     Route: 041
     Dates: start: 20210325, end: 20210329
  6. SODIUM CHLORIDE INJECTION [Concomitant]
     Active Substance: SODIUM CHLORIDE
     Indication: ENEMA ADMINISTRATION
  7. CHLORAL HYDRATE [Concomitant]
     Active Substance: CHLORAL HYDRATE
     Indication: ENEMA ADMINISTRATION
     Dosage: 6.5 ML
     Route: 048
  8. BUDESONIDE SUSPENSION FOR INHALATION [Suspect]
     Active Substance: BUDESONIDE
     Indication: PNEUMONIA
     Dosage: 1 MG, BID
     Route: 055
     Dates: start: 20210325, end: 20210329
  9. AMBROXOL HYDROCHLORIDE INJECTION [Suspect]
     Active Substance: AMBROXOL HYDROCHLORIDE
     Dosage: 7.5 MG, BID
     Route: 041
     Dates: start: 20210325, end: 20210329

REACTIONS (11)
  - Tremor [Recovering/Resolving]
  - Agitation [Recovering/Resolving]
  - Flushing [Recovering/Resolving]
  - Lip dry [Recovering/Resolving]
  - Dysphoria [Recovering/Resolving]
  - Mydriasis [Recovering/Resolving]
  - Speech disorder [Recovering/Resolving]
  - Tachypnoea [Recovering/Resolving]
  - Abdominal discomfort [Recovering/Resolving]
  - Pupillary reflex impaired [Recovering/Resolving]
  - Heart rate increased [Recovering/Resolving]

NARRATIVE: CASE EVENT DATE: 20210329
